FAERS Safety Report 6354596-3 (Version None)
Quarter: 2009Q3

REPORT INFORMATION
  Report Type: 
  Country: None (occurrence: None)
  Receive Date: 20090909
  Receipt Date: 20090901
  Transmission Date: 20100115
  Serious: Yes (Other)
  Sender: FDA-Public Use
  Company Number: MOZO-1000244

PATIENT
  Age: 56 Year
  Sex: Male
  Weight: 64 kg

DRUGS (7)
  1. MOZOBIL [Suspect]
     Indication: HAEMATOPOIETIC STEM CELL MOBILISATION
     Dosage: 0.82 ML, ONCE
     Dates: start: 20090511, end: 20090511
  2. MOZOBIL [Suspect]
     Indication: MULTIPLE MYELOMA
     Dosage: 0.82 ML, ONCE
     Dates: start: 20090511, end: 20090511
  3. PAMIDRONATE (PAMIDRONATE SODIUM) [Concomitant]
  4. MORPHINE SULFATE [Concomitant]
  5. VEFEND (VORICONAZOLE) [Concomitant]
  6. TRIMETHOPRIM-SULFAMETHOXAZOLE [Concomitant]
  7. OMEPRAZOL (OMEPRAZOLE MAGNESIUM) [Concomitant]

REACTIONS (1)
  - TRANSPLANT FAILURE [None]
